FAERS Safety Report 6672883-6 (Version None)
Quarter: 2010Q2

REPORT INFORMATION
  Report Type: 
  Country: None (occurrence: None)
  Receive Date: 20100408
  Receipt Date: 20100329
  Transmission Date: 20101027
  Serious: Yes (Other)
  Sender: FDA-Public Use
  Company Number: PHHY2010MX08327

PATIENT
  Sex: Female

DRUGS (6)
  1. ACLASTA [Suspect]
     Indication: OSTEOPOROSIS
     Dosage: 5 MG/ 100 ML PER YEAR
     Route: 042
     Dates: start: 20091222
  2. CITALOPRAM HYDROBROMIDE [Concomitant]
  3. NORVASC [Concomitant]
     Dosage: UNK
  4. TENORMIN [Concomitant]
  5. VENALOT DEPOT [Concomitant]
  6. LYRICA [Concomitant]

REACTIONS (9)
  - ASTHENIA [None]
  - BODY TEMPERATURE INCREASED [None]
  - CHILLS [None]
  - ERYSIPELAS [None]
  - HEADACHE [None]
  - INFLUENZA [None]
  - OEDEMA PERIPHERAL [None]
  - PAIN IN EXTREMITY [None]
  - SOMNOLENCE [None]
